FAERS Safety Report 8199453-5 (Version None)
Quarter: 2012Q1

REPORT INFORMATION
  Report Type: 
  Country: None (occurrence: None)
  Receive Date: 20120309
  Receipt Date: 20120306
  Transmission Date: 20120608
  Serious: Yes (Death)
  Sender: FDA-Public Use
  Company Number: US-PFIZER INC-2012039457

PATIENT
  Sex: Male

DRUGS (1)
  1. RAPAMUNE [Suspect]
     Indication: HEART TRANSPLANT
     Dosage: 1 MG, 1X/DAY
     Dates: start: 20110726

REACTIONS (1)
  - PULMONARY OEDEMA [None]
